FAERS Safety Report 14928521 (Version 3)
Quarter: 2022Q1

REPORT INFORMATION
  Report Type: Report from Study
  Country: FR (occurrence: FR)
  Receive Date: 20180523
  Receipt Date: 20220130
  Transmission Date: 20220423
  Serious: Yes (Death, Other)
  Sender: FDA-Public Use
  Company Number: FR-JAZZ-2018-FR-007966

PATIENT

DRUGS (1)
  1. DEFITELIO [Suspect]
     Active Substance: DEFIBROTIDE SODIUM
     Indication: Prophylaxis
     Dosage: 26.66 MG/KG, QD
     Route: 042
     Dates: start: 20161207, end: 20161227

REACTIONS (5)
  - Respiratory distress [Fatal]
  - Multiple organ dysfunction syndrome [Fatal]
  - Graft versus host disease [Fatal]
  - Infection [Fatal]
  - Off label use [Unknown]
